FAERS Safety Report 16934574 (Version 1)
Quarter: 2019Q4

REPORT INFORMATION
  Report Type: Spontaneous
  Country: HR (occurrence: HR)
  Receive Date: 20191018
  Receipt Date: 20191018
  Transmission Date: 20200122
  Serious: Yes (Death, Hospitalization, Other)
  Sender: FDA-Public Use
  Company Number: NVSC2019HR001999

PATIENT
  Age: 53 Year
  Sex: Female

DRUGS (7)
  1. MYCOPHENOLIC ACID. [Suspect]
     Active Substance: MYCOPHENOLIC ACID
     Indication: RENAL TRANSPLANT
     Dosage: 540 MG, BID
     Route: 065
  2. MYCOPHENOLIC ACID. [Suspect]
     Active Substance: MYCOPHENOLIC ACID
     Indication: IMMUNOSUPPRESSANT DRUG THERAPY
  3. PREDNISONE. [Suspect]
     Active Substance: PREDNISONE
     Indication: IMMUNOSUPPRESSANT DRUG THERAPY
     Dosage: 7.5 MG
     Route: 065
  4. TACROLIMUS. [Suspect]
     Active Substance: TACROLIMUS
     Indication: IMMUNOSUPPRESSANT DRUG THERAPY
  5. EVEROLIMUS. [Suspect]
     Active Substance: EVEROLIMUS
     Indication: TRANSPLANT DYSFUNCTION
     Route: 065
  6. PREDNISONE. [Suspect]
     Active Substance: PREDNISONE
     Indication: RENAL TRANSPLANT
     Dosage: 5 MG, QD
     Route: 065
  7. TACROLIMUS. [Suspect]
     Active Substance: TACROLIMUS
     Indication: RENAL TRANSPLANT
     Dosage: 4-8 NG/ML
     Route: 065

REACTIONS (21)
  - Neurological decompensation [Fatal]
  - Myalgia [Fatal]
  - Mental impairment [Fatal]
  - JC virus infection [Fatal]
  - Insomnia [Fatal]
  - Progressive multifocal leukoencephalopathy [Fatal]
  - Speech disorder [Fatal]
  - Cognitive disorder [Fatal]
  - Product use in unapproved indication [Unknown]
  - Coma [Fatal]
  - Depression [Fatal]
  - Personality change [Fatal]
  - Motor dysfunction [Fatal]
  - Respiratory failure [Unknown]
  - Transplant dysfunction [Unknown]
  - General physical health deterioration [Fatal]
  - Pneumonia [Unknown]
  - Staphylococcal infection [Unknown]
  - Pseudomonas infection [Unknown]
  - Immune reconstitution inflammatory syndrome [Unknown]
  - Pyrexia [Unknown]
